FAERS Safety Report 12087091 (Version 1)
Quarter: 2016Q1

REPORT INFORMATION
  Report Type: Spontaneous
  Country: US (occurrence: US)
  Receive Date: 20160217
  Receipt Date: 20160217
  Transmission Date: 20160526
  Serious: No
  Sender: FDA-Public Use
  Company Number: US-ALLERGAN-1505771US

PATIENT
  Age: 80 Year
  Sex: Female

DRUGS (1)
  1. RESTASIS [Suspect]
     Active Substance: CYCLOSPORINE
     Indication: DRY EYE
     Route: 047

REACTIONS (5)
  - Trichiasis [Unknown]
  - Eye pain [Unknown]
  - Cataract operation [Unknown]
  - Eyelid operation [Unknown]
  - Cataract operation [Unknown]

NARRATIVE: CASE EVENT DATE: 2008
